FAERS Safety Report 5652077-3 (Version None)
Quarter: 2008Q1

REPORT INFORMATION
  Report Type: 
  Country: None (occurrence: None)
  Receive Date: 20080305
  Receipt Date: 20080226
  Transmission Date: 20080703
  Serious: Yes (Other)
  Sender: FDA-Public Use
  Company Number: US-PFIZER INC-2008018180

PATIENT
  Sex: Male
  Weight: 78.5 kg

DRUGS (4)
  1. XALATAN [Suspect]
     Indication: OPEN ANGLE GLAUCOMA
  2. XAL-EASE [Suspect]
  3. VALSARTAN [Concomitant]
  4. VITAMIN CAP [Concomitant]

REACTIONS (2)
  - EYE DISORDER [None]
  - PHARMACEUTICAL PRODUCT COMPLAINT [None]
